FAERS Safety Report 16557102 (Version 2)
Quarter: 2019Q3

REPORT INFORMATION
  Report Type: Report from Study
  Country: US (occurrence: US)
  Receive Date: 20190711
  Receipt Date: 20190911
  Transmission Date: 20191004
  Serious: Yes (Hospitalization)
  Sender: FDA-Public Use
  Company Number: US-BAYER-2019-128611

PATIENT
  Age: 74 Year
  Sex: Female

DRUGS (2)
  1. NEXAVAR [Suspect]
     Active Substance: SORAFENIB
     Indication: HEPATIC CANCER
     Dosage: 400 MG, BID
  2. NEXAVAR [Suspect]
     Active Substance: SORAFENIB
     Indication: HEPATIC CANCER
     Dosage: 400 MG, QD
     Dates: start: 20190212

REACTIONS (11)
  - Hospitalisation [None]
  - Blood magnesium increased [None]
  - General physical health deterioration [None]
  - Blood potassium increased [None]
  - Asthenia [None]
  - Product dose omission [None]
  - Decreased appetite [None]
  - Retching [None]
  - Off label use [None]
  - Blood pressure increased [None]
  - Blood creatinine increased [None]

NARRATIVE: CASE EVENT DATE: 20190212
